FAERS Safety Report 7624557-2 (Version None)
Quarter: 2011Q3

REPORT INFORMATION
  Report Type: 
  Country: None (occurrence: None)
  Receive Date: 20110720
  Receipt Date: 20110711
  Transmission Date: 20111222
  Serious: Yes (Hospitalization, Other)
  Sender: FDA-Public Use
  Company Number: US-ASTRAZENECA-2011SE40532

PATIENT
  Age: 61 Year
  Sex: Male

DRUGS (1)
  1. TOPROL-XL [Suspect]
     Route: 048

REACTIONS (5)
  - INTRACRANIAL ANEURYSM [None]
  - BRAIN OPERATION [None]
  - DIVERTICULITIS [None]
  - DRUG DOSE OMISSION [None]
  - MALAISE [None]
